FAERS Safety Report 4945347-5 (Version None)
Quarter: 2006Q1

REPORT INFORMATION
  Report Type: 
  Country: None (occurrence: None)
  Receive Date: 20060315
  Receipt Date: 20060315
  Transmission Date: 20060701
  Serious: Yes (Hospitalization)
  Sender: FDA-Public Use
  Company Number: None

PATIENT
  Age: 63 Year
  Sex: Male
  Weight: 71.2147 kg

DRUGS (4)
  1. LITHIUM [Suspect]
     Indication: BIPOLAR DISORDER
     Dosage: 300MG PO TID
     Route: 048
  2. FLUPHENAZINE [Concomitant]
  3. LORAZEPAM [Concomitant]
  4. RISPERIDONE [Concomitant]

REACTIONS (9)
  - ASTHENIA [None]
  - CONFUSIONAL STATE [None]
  - DEHYDRATION [None]
  - FEELING ABNORMAL [None]
  - GAIT DISTURBANCE [None]
  - HUNGER [None]
  - RENAL IMPAIRMENT [None]
  - THERAPEUTIC AGENT TOXICITY [None]
  - THIRST [None]
